FAERS Safety Report 8378586-4 (Version None)
Quarter: 2012Q2

REPORT INFORMATION
  Report Type: 
  Country: None (occurrence: None)
  Receive Date: 20120522
  Receipt Date: 20111004
  Transmission Date: 20120825
  Serious: No
  Sender: FDA-Public Use
  Company Number: US-ASTRAZENECA-2011SE59952

PATIENT
  Age: 57 Year
  Sex: Female

DRUGS (10)
  1. VENTOLIN HFA [Concomitant]
  2. PRILOSEC [Suspect]
     Route: 048
  3. SEROQUEL XR [Suspect]
     Route: 048
  4. HYDROCODONE BITARTRATE + ACETAMINOPHEN [Concomitant]
  5. CLONAZEPAM [Concomitant]
  6. SOMA [Concomitant]
  7. SYNTHROID [Concomitant]
  8. LIPITOR [Concomitant]
  9. PROZAC [Concomitant]
  10. NORVASC [Concomitant]

REACTIONS (5)
  - FAECALOMA [None]
  - RECTAL HAEMORRHAGE [None]
  - DIVERTICULUM INTESTINAL [None]
  - URINARY RETENTION [None]
  - CONSTIPATION [None]
